FAERS Safety Report 16230509 (Version 3)
Quarter: 2019Q2

REPORT INFORMATION
  Report Type: Spontaneous
  Country: AR (occurrence: AR)
  Receive Date: 20190423
  Receipt Date: 20190507
  Transmission Date: 20190711
  Serious: Yes (Death, Other)
  Sender: FDA-Public Use
  Company Number: AR-ALLERGAN-1917156US

PATIENT
  Sex: Female
  Weight: 85 kg

DRUGS (2)
  1. LINEZOLID. [Concomitant]
     Active Substance: LINEZOLID
     Indication: BACTERAEMIA
     Dosage: UNK
     Route: 065
  2. CEFTAZIDIME;AVIBACTAM - BP [Suspect]
     Active Substance: AVIBACTAM SODIUM\CEFTAZIDIME
     Indication: KLEBSIELLA INFECTION
     Dosage: 21
     Route: 065
     Dates: start: 201902, end: 201903

REACTIONS (2)
  - Lower gastrointestinal haemorrhage [Fatal]
  - Platelet count decreased [Not Recovered/Not Resolved]

NARRATIVE: CASE EVENT DATE: 20190312
